FAERS Safety Report 16685848 (Version 2)
Quarter: 2019Q3

REPORT INFORMATION
  Report Type: Spontaneous
  Country: US (occurrence: US)
  Receive Date: 20190809
  Receipt Date: 20190831
  Transmission Date: 20191004
  Serious: No
  Sender: FDA-Public Use
  Company Number: US-HETERO-HET2019US01058

PATIENT

DRUGS (1)
  1. SILDENAFIL. [Suspect]
     Active Substance: SILDENAFIL
     Indication: PRODUCT USED FOR UNKNOWN INDICATION
     Dosage: 100 MG
     Route: 065

REACTIONS (3)
  - Product taste abnormal [Unknown]
  - Dysgeusia [Unknown]
  - Drug ineffective [Unknown]
